FAERS Safety Report 5375839-9 (Version None)
Quarter: 2007Q3

REPORT INFORMATION
  Report Type: 
  Country: None (occurrence: None)
  Receive Date: 20070702
  Receipt Date: 20070622
  Transmission Date: 20080115
  Serious: Yes (Hospitalization)
  Sender: FDA-Public Use
  Company Number: PHRM2007FR01737

PATIENT
  Age: 53 Year
  Sex: Female

DRUGS (9)
  1. LIORESAL [Suspect]
     Indication: MUSCLE SPASTICITY
     Dosage: 80 MG/DAY
     Route: 048
  2. LIORESAL [Suspect]
     Dosage: 45 MG/DAY
     Route: 048
  3. DANTRIUM [Suspect]
     Indication: MUSCLE SPASTICITY
     Dosage: 8 DF/DAY
     Route: 048
  4. DANTRIUM [Suspect]
     Dosage: 100 MG/DAY
     Route: 048
  5. COVERSYL /FRA/ [Concomitant]
     Route: 048
  6. DAFALGAN [Concomitant]
     Route: 048
  7. SIMVASTATIN [Concomitant]
     Route: 048
  8. AMLODIPINE [Concomitant]
     Route: 048
  9. OXYBUTYNIN [Concomitant]
     Route: 048

REACTIONS (3)
  - GAIT DISTURBANCE [None]
  - HYPOTONIA [None]
  - KINESITHERAPY [None]
